FAERS Safety Report 13939694 (Version 2)
Quarter: 2017Q4

REPORT INFORMATION
  Report Type: Spontaneous
  Country: JP (occurrence: JP)
  Receive Date: 20170906
  Receipt Date: 20171129
  Transmission Date: 20180320
  Serious: Yes (Hospitalization)
  Sender: FDA-Public Use
  Company Number: JP-ELI_LILLY_AND_COMPANY-JP201708012444

PATIENT
  Age: 25 Year
  Sex: Male

DRUGS (1)
  1. ADCIRCA [Suspect]
     Active Substance: TADALAFIL
     Indication: PRODUCT USED FOR UNKNOWN INDICATION
     Dosage: 20 MG, DAILY
     Route: 048
     Dates: start: 2012

REACTIONS (2)
  - Lower limb fracture [Recovering/Resolving]
  - Foot fracture [Recovering/Resolving]

NARRATIVE: CASE EVENT DATE: 201708
